FAERS Safety Report 18041510 (Version 2)
Quarter: 2020Q4

REPORT INFORMATION
  Report Type: Spontaneous
  Country: US (occurrence: US)
  Receive Date: 20200720
  Receipt Date: 20201126
  Transmission Date: 20210113
  Serious: Yes (Other)
  Sender: FDA-Public Use
  Company Number: US-ASTRAZENECA-2020SE89206

PATIENT
  Age: 49 Year
  Sex: Female
  Weight: 72.6 kg

DRUGS (77)
  1. NEXIUM [Suspect]
     Active Substance: ESOMEPRAZOLE MAGNESIUM
     Indication: GASTROOESOPHAGEAL REFLUX DISEASE
     Route: 048
     Dates: start: 1994, end: 2017
  2. NEXIUM [Suspect]
     Active Substance: ESOMEPRAZOLE MAGNESIUM
     Indication: GASTROOESOPHAGEAL REFLUX DISEASE
     Route: 048
     Dates: start: 20051028
  3. HYDRALAZINE [Concomitant]
     Active Substance: HYDRALAZINE HYDROCHLORIDE
     Indication: HYPERTENSION
  4. ATORVASTATIN [Concomitant]
     Active Substance: ATORVASTATIN
     Indication: BLOOD CHOLESTEROL INCREASED
  5. RANITIDINE. [Concomitant]
     Active Substance: RANITIDINE
     Dates: start: 2014, end: 2016
  6. AZITHROMYCIN ANHYDROUS. [Concomitant]
     Active Substance: AZITHROMYCIN ANHYDROUS
  7. NIACIN. [Concomitant]
     Active Substance: NIACIN
  8. NEXIUM [Suspect]
     Active Substance: ESOMEPRAZOLE MAGNESIUM
     Indication: GASTROOESOPHAGEAL REFLUX DISEASE
     Route: 048
     Dates: start: 1996
  9. NEXIUM [Suspect]
     Active Substance: ESOMEPRAZOLE MAGNESIUM
     Indication: GASTROOESOPHAGEAL REFLUX DISEASE
     Dosage: GENERIC
     Route: 065
  10. NEXIUM [Suspect]
     Active Substance: ESOMEPRAZOLE MAGNESIUM
     Indication: GASTROOESOPHAGEAL REFLUX DISEASE
     Route: 048
     Dates: start: 20051128
  11. DEXILANT [Suspect]
     Active Substance: DEXLANSOPRAZOLE
     Indication: GASTROOESOPHAGEAL REFLUX DISEASE
     Route: 065
     Dates: start: 2004
  12. CEFUROXIME. [Concomitant]
     Active Substance: CEFUROXIME
  13. METOPROLOL SUCCINATE. [Concomitant]
     Active Substance: METOPROLOL SUCCINATE
  14. AVANDIA [Concomitant]
     Active Substance: ROSIGLITAZONE MALEATE
  15. CYANOCOBALAMIN. [Concomitant]
     Active Substance: CYANOCOBALAMIN
  16. PREVACID [Suspect]
     Active Substance: LANSOPRAZOLE
     Indication: GASTROOESOPHAGEAL REFLUX DISEASE
     Route: 065
     Dates: start: 1996, end: 2014
  17. RANITIDINE. [Concomitant]
     Active Substance: RANITIDINE
     Dates: start: 2013
  18. FENOFIBRATE. [Concomitant]
     Active Substance: FENOFIBRATE
  19. LOVASTATIN. [Concomitant]
     Active Substance: LOVASTATIN
  20. CIPROFLOXACIN. [Concomitant]
     Active Substance: CIPROFLOXACIN
  21. IPRAT-ALBUTEROL [Concomitant]
  22. VASCEPA [Concomitant]
     Active Substance: ICOSAPENT ETHYL
  23. CAMILA [Concomitant]
     Active Substance: NORETHINDRONE
  24. PRILOSEC [Suspect]
     Active Substance: OMEPRAZOLE MAGNESIUM
     Indication: GASTROOESOPHAGEAL REFLUX DISEASE
     Dosage: GENERIC
     Route: 065
  25. PEPCID [Concomitant]
     Active Substance: FAMOTIDINE
  26. PREMARIN [Concomitant]
     Active Substance: ESTROGENS, CONJUGATED
  27. LAMOTRIGINE. [Concomitant]
     Active Substance: LAMOTRIGINE
  28. AMOXICILLIN. [Concomitant]
     Active Substance: AMOXICILLIN
  29. ALPRAZOLAM. [Concomitant]
     Active Substance: ALPRAZOLAM
  30. AZELASTINE. [Concomitant]
     Active Substance: AZELASTINE HYDROCHLORIDE
  31. NEXIUM [Suspect]
     Active Substance: ESOMEPRAZOLE MAGNESIUM
     Indication: GASTROOESOPHAGEAL REFLUX DISEASE
     Route: 048
     Dates: start: 20051220
  32. BENADRYL [Concomitant]
     Active Substance: DIPHENHYDRAMINE HYDROCHLORIDE
     Indication: HYPERSENSITIVITY
  33. FAMOTIDINE. [Concomitant]
     Active Substance: FAMOTIDINE
  34. GLIMEPIRIDE. [Concomitant]
     Active Substance: GLIMEPIRIDE
  35. METHOCARBAMOL. [Concomitant]
     Active Substance: METHOCARBAMOL
  36. VICTOZA [Concomitant]
     Active Substance: LIRAGLUTIDE
  37. CYMBALTA [Concomitant]
     Active Substance: DULOXETINE HYDROCHLORIDE
  38. SULFAMETHOXAZOLE [Concomitant]
     Active Substance: SULFAMETHOXAZOLE
  39. KETOCONAZOLE. [Concomitant]
     Active Substance: KETOCONAZOLE
  40. DOCUSATE [Concomitant]
     Active Substance: DOCUSATE
  41. MUCINEX [Concomitant]
     Active Substance: GUAIFENESIN
  42. DULOXETINE. [Concomitant]
     Active Substance: DULOXETINE
  43. MECLIZINE [Concomitant]
     Active Substance: MECLIZINE HYDROCHLORIDE
  44. SYMBICORT [Concomitant]
     Active Substance: BUDESONIDE\FORMOTEROL FUMARATE DIHYDRATE
  45. LINZESS [Concomitant]
     Active Substance: LINACLOTIDE
  46. DEXILANT [Suspect]
     Active Substance: DEXLANSOPRAZOLE
     Indication: GASTROOESOPHAGEAL REFLUX DISEASE
     Route: 065
     Dates: start: 1996
  47. FUROSEMIDE. [Concomitant]
     Active Substance: FUROSEMIDE
     Indication: OEDEMA
  48. DICLOFENAC [Concomitant]
     Active Substance: DICLOFENAC
     Indication: PAIN
  49. PHENAZOPYRIDINE. [Concomitant]
     Active Substance: PHENAZOPYRIDINE
  50. JANUMET [Concomitant]
     Active Substance: METFORMIN HYDROCHLORIDE\SITAGLIPTIN PHOSPHATE
  51. KLOR-CON [Concomitant]
     Active Substance: POTASSIUM CHLORIDE
  52. OXYCODONE-ACETAMINOPHEN [Concomitant]
     Active Substance: ACETAMINOPHEN\OXYCODONE HYDROCHLORIDE
  53. CYANOCOBALAMIN. [Concomitant]
     Active Substance: CYANOCOBALAMIN
  54. LANTUS [Concomitant]
     Active Substance: INSULIN GLARGINE
  55. ABILIFY [Concomitant]
     Active Substance: ARIPIPRAZOLE
  56. NEXIUM [Suspect]
     Active Substance: ESOMEPRAZOLE MAGNESIUM
     Indication: GASTROOESOPHAGEAL REFLUX DISEASE
     Route: 048
     Dates: start: 20060121
  57. PROTONIX [Suspect]
     Active Substance: PANTOPRAZOLE SODIUM
     Indication: GASTROOESOPHAGEAL REFLUX DISEASE
     Route: 065
     Dates: start: 1996, end: 2014
  58. SPIRONOLACTONE. [Concomitant]
     Active Substance: SPIRONOLACTONE
     Indication: PAIN
  59. RANITIDINE. [Concomitant]
     Active Substance: RANITIDINE
     Dosage: ZANTAC
  60. RANITIDINE. [Concomitant]
     Active Substance: RANITIDINE
     Dates: start: 2016, end: 2019
  61. LISINOPRIL. [Concomitant]
     Active Substance: LISINOPRIL
  62. BUSPIRONE [Concomitant]
     Active Substance: BUSPIRONE HYDROCHLORIDE
  63. NOVOLOG [Concomitant]
     Active Substance: INSULIN ASPART
  64. LEVOCETIRIZINE [Concomitant]
     Active Substance: LEVOCETIRIZINE
  65. OXYCODONE-ACETAMINOPHEN [Concomitant]
     Active Substance: ACETAMINOPHEN\OXYCODONE HYDROCHLORIDE
  66. DULOXETINE. [Concomitant]
     Active Substance: DULOXETINE
  67. FERROUS SULFATE. [Concomitant]
     Active Substance: FERROUS SULFATE
  68. SPIRIVA [Concomitant]
     Active Substance: TIOTROPIUM BROMIDE MONOHYDRATE
  69. ISOSORBIDE MONONITRATE. [Concomitant]
     Active Substance: ISOSORBIDE MONONITRATE
  70. PRILOSEC [Suspect]
     Active Substance: OMEPRAZOLE MAGNESIUM
     Indication: GASTROOESOPHAGEAL REFLUX DISEASE
     Route: 048
     Dates: start: 1996, end: 2014
  71. CLOPIDOGREL [Concomitant]
     Active Substance: CLOPIDOGREL BISULFATE
     Indication: MYOCARDIAL INFARCTION
  72. RANITIDINE. [Concomitant]
     Active Substance: RANITIDINE
     Dates: start: 2010, end: 2011
  73. CHANTIX [Concomitant]
     Active Substance: VARENICLINE TARTRATE
  74. METOCLOPRAMIDE. [Concomitant]
     Active Substance: METOCLOPRAMIDE
  75. ALPRAZOLAM. [Concomitant]
     Active Substance: ALPRAZOLAM
  76. ALPRAZOLAM. [Concomitant]
     Active Substance: ALPRAZOLAM
  77. SIMVASTATIN. [Concomitant]
     Active Substance: SIMVASTATIN

REACTIONS (3)
  - Chronic kidney disease [Not Recovered/Not Resolved]
  - Renal failure [Unknown]
  - Nephrogenic anaemia [Unknown]

NARRATIVE: CASE EVENT DATE: 2013
